FAERS Safety Report 8280173-3 (Version None)
Quarter: 2012Q2

REPORT INFORMATION
  Report Type: 
  Country: None (occurrence: None)
  Receive Date: 20120412
  Receipt Date: 20120405
  Transmission Date: 20120825
  Serious: Yes (Hospitalization)
  Sender: FDA-Public Use
  Company Number: CA-BIOMARINP-002460

PATIENT
  Sex: Male

DRUGS (1)
  1. SAPROPTERIN [Suspect]
     Indication: PHENYLKETONURIA
     Route: 064

REACTIONS (1)
  - FOETAL DISTRESS SYNDROME [None]
